FAERS Safety Report 11881739 (Version 1)
Quarter: 2015Q4

REPORT INFORMATION
  Report Type: Spontaneous
  Country: FR (occurrence: FR)
  Receive Date: 20151231
  Receipt Date: 20151231
  Transmission Date: 20160305
  Serious: Yes (Hospitalization)
  Sender: FDA-Public Use
  Company Number: FR-ROCHE-1686686

PATIENT
  Age: 68 Year
  Sex: Male

DRUGS (12)
  1. ETOPOPHOS [Suspect]
     Active Substance: ETOPOSIDE PHOSPHATE
     Indication: MANTLE CELL LYMPHOMA STAGE IV
     Dosage: 3 CYCLES
     Route: 042
     Dates: start: 20130408, end: 20130620
  2. MOPRAL [Concomitant]
     Active Substance: OMEPRAZOLE SODIUM
     Route: 065
  3. IMBRUVICA [Suspect]
     Active Substance: IBRUTINIB
     Indication: MANTLE CELL LYMPHOMA STAGE IV
     Route: 048
     Dates: start: 20150213, end: 20151030
  4. GEMCITABINE [Suspect]
     Active Substance: GEMCITABINE\GEMCITABINE HYDROCHLORIDE
     Indication: MANTLE CELL LYMPHOMA STAGE IV
     Dosage: 6 CYCLES
     Route: 042
     Dates: start: 20130723, end: 2013
  5. ORACILLINE [Concomitant]
     Active Substance: PENICILLIN V
     Dosage: 1 DF
     Route: 065
  6. ZELITREX [Concomitant]
     Active Substance: VALACYCLOVIR HYDROCHLORIDE
     Dosage: 1 DF
     Route: 065
  7. EUPRESSYL [Concomitant]
     Active Substance: URAPIDIL
     Route: 065
  8. MITOXANTRONE [Suspect]
     Active Substance: MITOXANTRONE HYDROCHLORIDE
     Indication: MANTLE CELL LYMPHOMA STAGE IV
     Dosage: 3 CYCLES
     Route: 042
     Dates: start: 20130408, end: 20130620
  9. MABTHERA [Suspect]
     Active Substance: RITUXIMAB
     Indication: MANTLE CELL LYMPHOMA STAGE IV
     Route: 042
     Dates: end: 20130430
  10. IMBRUVICA [Suspect]
     Active Substance: IBRUTINIB
     Route: 048
     Dates: start: 20151109
  11. OXALIPLATINE [Suspect]
     Active Substance: OXALIPLATIN
     Indication: MANTLE CELL LYMPHOMA STAGE IV
     Dosage: 6 CYCLES
     Route: 042
     Dates: start: 20130723, end: 2013
  12. IFOSFAMIDE EG [Suspect]
     Active Substance: IFOSFAMIDE
     Indication: MANTLE CELL LYMPHOMA STAGE IV
     Dosage: 3 CYCLES
     Route: 042
     Dates: start: 20130408, end: 20130620

REACTIONS (1)
  - Adenocarcinoma of colon [Not Recovered/Not Resolved]

NARRATIVE: CASE EVENT DATE: 20151002
